FAERS Safety Report 4290846-5 (Version None)
Quarter: 2004Q1

REPORT INFORMATION
  Report Type: 
  Country: None (occurrence: None)
  Receive Date: 20040211
  Receipt Date: 20031009
  Transmission Date: 20041129
  Serious: No
  Sender: FDA-Public Use
  Company Number: US-GLAXOSMITHKLINE-A0429679A

PATIENT
  Age: 73 Year
  Sex: Female

DRUGS (6)
  1. PAXIL [Suspect]
     Indication: DEPRESSION
     Dosage: 10MG PER DAY
     Route: 048
  2. REMERON [Concomitant]
  3. LIPITOR [Concomitant]
  4. AMBIEN [Concomitant]
  5. CIPRO [Concomitant]
  6. ARTANE [Concomitant]

REACTIONS (1)
  - HYPERHIDROSIS [None]
